FAERS Safety Report 6295053-2 (Version None)
Quarter: 2009Q3

REPORT INFORMATION
  Report Type: 
  Country: None (occurrence: None)
  Receive Date: 20090731
  Receipt Date: 20090731
  Transmission Date: 20100115
  Serious: No
  Sender: FDA-Public Use
  Company Number: None

PATIENT
  Age: 67 Year
  Sex: Male
  Weight: 83.9154 kg

DRUGS (1)
  1. RYZOLT [Suspect]
     Indication: BACK PAIN
     Dosage: 200 MG ONE A DAY PO
     Route: 048
     Dates: start: 20090729, end: 20090729

REACTIONS (4)
  - CONSTIPATION [None]
  - INSOMNIA [None]
  - RETCHING [None]
  - VOMITING [None]
